FAERS Safety Report 13188549 (Version 1)
Quarter: 2017Q1

REPORT INFORMATION
  Report Type: Spontaneous
  Country: US (occurrence: US)
  Receive Date: 20170206
  Receipt Date: 20170206
  Transmission Date: 20170428
  Serious: No
  Sender: FDA-Public Use
  Company Number: US-009507513-1701USA010221

PATIENT
  Sex: Female

DRUGS (1)
  1. NEXPLANON [Suspect]
     Active Substance: ETONOGESTREL
     Indication: CONTRACEPTION
     Dosage: 1 ROD, 3 YEARS
     Route: 059
     Dates: start: 20170119

REACTIONS (4)
  - Hypersensitivity [Not Recovered/Not Resolved]
  - Implant site swelling [Not Recovered/Not Resolved]
  - Implant site bruising [Not Recovered/Not Resolved]
  - Implant site erythema [Not Recovered/Not Resolved]

NARRATIVE: CASE EVENT DATE: 201701
